APPROVED DRUG PRODUCT: DIMETANE-TEN
Active Ingredient: BROMPHENIRAMINE MALEATE
Strength: 10MG/ML
Dosage Form/Route: INJECTABLE;INJECTION
Application: N011418 | Product #002
Applicant: WYETH AYERST LABORATORIES
Approved: Approved Prior to Jan 1, 1982 | RLD: No | RS: No | Type: DISCN